FAERS Safety Report 12692370 (Version 2)
Quarter: 2016Q3

REPORT INFORMATION
  Report Type: Spontaneous
  Country: ES (occurrence: ES)
  Receive Date: 20160828
  Receipt Date: 20160830
  Transmission Date: 20161109
  Serious: Yes (Death, Other)
  Sender: FDA-Public Use
  Company Number: ES-BEH-2016073005

PATIENT
  Age: 23 Year
  Sex: Male

DRUGS (2)
  1. GANCICLOVIR. [Concomitant]
     Active Substance: GANCICLOVIR
     Indication: CYTOMEGALOVIRUS INFECTION
     Dosage: 5 MG/KG, BID
     Route: 065
  2. HUMAN IMMUNOGLOBULIN (NC) [Suspect]
     Active Substance: HUMAN IMMUNOGLOBULIN G
     Indication: GUILLAIN-BARRE SYNDROME
     Route: 042

REACTIONS (1)
  - Drug ineffective [Fatal]
